FAERS Safety Report 6984714-5 (Version None)
Quarter: 2010Q3

REPORT INFORMATION
  Report Type: 
  Country: None (occurrence: None)
  Receive Date: 20100914
  Receipt Date: 20100914
  Transmission Date: 20110219
  Serious: Yes (Hospitalization)
  Sender: FDA-Public Use
  Company Number: None

PATIENT
  Age: 85 Year
  Sex: Male
  Weight: 87 kg

DRUGS (1)
  1. GLYBURIDE [Suspect]
     Indication: DIABETES MELLITUS
     Dosage: 1.25 MG TID PO
     Route: 048
     Dates: start: 20081023, end: 20100819

REACTIONS (3)
  - CONFUSIONAL STATE [None]
  - FALL [None]
  - HYPOGLYCAEMIA [None]
